FAERS Safety Report 22618705 (Version 1)
Quarter: 2023Q2

REPORT INFORMATION
  Report Type: Spontaneous
  Country: US (occurrence: US)
  Receive Date: 20230620
  Receipt Date: 20230620
  Transmission Date: 20230721
  Serious: No
  Sender: FDA-Public Use
  Company Number: US-PFM-2023-00156

PATIENT
  Sex: Female
  Weight: 5.442 kg

DRUGS (1)
  1. HEMANGEOL [Suspect]
     Active Substance: PROPRANOLOL HYDROCHLORIDE
     Indication: Haemangioma
     Dosage: 1.6 ML, BID (2/DAY)
     Route: 048
     Dates: start: 20230106

REACTIONS (3)
  - Grunting [Unknown]
  - Gastrooesophageal reflux disease [Unknown]
  - Infantile spitting up [Unknown]
